FAERS Safety Report 5177761-X (Version None)
Quarter: 2006Q4

REPORT INFORMATION
  Report Type: 
  Country: None (occurrence: None)
  Receive Date: 20061208
  Receipt Date: 20061129
  Transmission Date: 20070319
  Serious: Yes (Hospitalization, Other)
  Sender: FDA-Public Use
  Company Number: 2006130168

PATIENT
  Age: 49 Year
  Sex: Male

DRUGS (6)
  1. CELEBREX [Suspect]
     Indication: ANALGESIC EFFECT
     Dosage: (200 MG), ORAL
     Route: 048
     Dates: start: 20061016
  2. DICLOFENAC SODIUM [Suspect]
  3. CELESTAMINE TAB [Concomitant]
  4. ALL OTHER THERAPEUTIC PRODUCTS (ALL OTHER THERAPEUTIC PRODUCTS) [Concomitant]
  5. SALBUTAMOL SULFATE (SALBUTAMOL SULFATE) [Concomitant]
  6. BEROTEC [Concomitant]

REACTIONS (3)
  - ASTHMATIC CRISIS [None]
  - DYSPNOEA [None]
  - HEART RATE INCREASED [None]
